FAERS Safety Report 5176762-5 (Version None)
Quarter: 2006Q4

REPORT INFORMATION
  Report Type: 
  Country: None (occurrence: None)
  Receive Date: 20061212
  Receipt Date: 20061212
  Transmission Date: 20070319
  Serious: Yes (Hospitalization)
  Sender: FDA-Public Use
  Company Number: None

PATIENT
  Age: 56 Year
  Sex: Female
  Weight: 55 kg

DRUGS (1)
  1. CHANTIX [Suspect]
     Indication: DRUG THERAPY
     Dosage: 2 MG BID PO
     Route: 048

REACTIONS (5)
  - CONFUSIONAL STATE [None]
  - CYANOSIS [None]
  - ILL-DEFINED DISORDER [None]
  - INCOHERENT [None]
  - SYNCOPE [None]
